FAERS Safety Report 25255902 (Version 2)
Quarter: 2025Q3

REPORT INFORMATION
  Report Type: Spontaneous
  Country: EU (occurrence: EU)
  Receive Date: 20250430
  Receipt Date: 20250731
  Transmission Date: 20251020
  Serious: Yes (Other)
  Sender: PFIZER
  Company Number: EU-PFIZER INC-PV202500050349

PATIENT
  Age: 46 Year
  Sex: Female

DRUGS (5)
  1. TRASTUZUMAB [Suspect]
     Active Substance: TRASTUZUMAB
     Indication: HER2 positive breast cancer
     Dates: start: 2019, end: 2021
  2. ADO-TRASTUZUMAB EMTANSINE [Suspect]
     Active Substance: ADO-TRASTUZUMAB EMTANSINE
     Indication: HER2 positive breast cancer
     Dates: start: 2021
  3. TRASTUZUMAB DERUXTECAN [Suspect]
     Active Substance: TRASTUZUMAB DERUXTECAN
     Indication: HER2 positive breast cancer
  4. PERTUZUMAB [Suspect]
     Active Substance: PERTUZUMAB
     Dates: start: 2019, end: 2021
  5. PACLITAXEL [Concomitant]
     Active Substance: PACLITAXEL
     Dates: start: 2019, end: 2021

REACTIONS (1)
  - Pulmonary granuloma [Recovered/Resolved]
